FAERS Safety Report 8314930-1 (Version None)
Quarter: 2012Q2

REPORT INFORMATION
  Report Type: 
  Country: None (occurrence: None)
  Receive Date: 20120426
  Receipt Date: 20120416
  Transmission Date: 20120825
  Serious: Yes (Other)
  Sender: FDA-Public Use
  Company Number: US-JNJFOC-20120407337

PATIENT
  Sex: Female
  Weight: 95.26 kg

DRUGS (3)
  1. LISINOPRIL [Concomitant]
     Indication: HYPERTENSION
     Route: 048
     Dates: start: 20060101
  2. REMICADE [Suspect]
     Indication: COLITIS ULCERATIVE
     Route: 042
     Dates: start: 20110301, end: 20120203
  3. FOLIC ACID [Concomitant]
     Indication: COLITIS
     Route: 048
     Dates: start: 20020101

REACTIONS (2)
  - HYPOTENSION [None]
  - LUPUS-LIKE SYNDROME [None]
